FAERS Safety Report 4574198-9 (Version None)
Quarter: 2005Q1

REPORT INFORMATION
  Report Type: 
  Country: None (occurrence: None)
  Receive Date: 20050208
  Receipt Date: 20050203
  Transmission Date: 20050727
  Serious: Yes (Life-Threatening)
  Sender: FDA-Public Use
  Company Number: 200510263EU

PATIENT
  Age: 92 Year
  Sex: Male

DRUGS (2)
  1. SEGURIL [Suspect]
     Indication: CARDIAC FAILURE
     Route: 048
     Dates: end: 20040528
  2. PRITOR [Suspect]
     Indication: CARDIAC FAILURE
     Route: 048
     Dates: end: 20040528

REACTIONS (1)
  - RENAL FAILURE ACUTE [None]
